FAERS Safety Report 19105097 (Version 48)
Quarter: 2022Q2

REPORT INFORMATION
  Report Type: Spontaneous
  Country: GB (occurrence: GB)
  Receive Date: 20210408
  Receipt Date: 20220606
  Transmission Date: 20220720
  Serious: Yes (Hospitalization, Disabling, Other)
  Sender: FDA-Public Use
  Company Number: None

PATIENT
  Age: 24 Year
  Sex: Male

DRUGS (44)
  1. MIRTAZAPINE [Suspect]
     Active Substance: MIRTAZAPINE
     Indication: Antidepressant therapy
     Dosage: 7.5 MG UPTITRATED TO 45 MG DAILY THE REDUCED DOWN TO STOP
     Route: 048
     Dates: start: 2014, end: 2015
  2. MIRTAZAPINE [Suspect]
     Active Substance: MIRTAZAPINE
     Indication: Product used for unknown indication
     Dosage: 45 MILLIGRAM (7.5MG UPTITRATED YO 45MG DAILY THEN REDUCED DOWN TO STOP)
     Route: 048
     Dates: start: 2014, end: 2015
  3. MIRTAZAPINE [Suspect]
     Active Substance: MIRTAZAPINE
     Indication: Aggression
  4. TRAZODONE HYDROCHLORIDE [Suspect]
     Active Substance: TRAZODONE HYDROCHLORIDE
     Indication: Antidepressant therapy
     Dosage: 50 MILLIGRAM, QD (REDUCED TO 50MG BEFORE STOPPING)
     Route: 048
     Dates: start: 2015, end: 201507
  5. TRAZODONE HYDROCHLORIDE [Suspect]
     Active Substance: TRAZODONE HYDROCHLORIDE
     Indication: Poor quality sleep
     Dosage: 50 MG (50MG INITAILLY)
     Route: 048
     Dates: start: 2015, end: 201507
  6. TRAZODONE HYDROCHLORIDE [Suspect]
     Active Substance: TRAZODONE HYDROCHLORIDE
     Indication: Product used for unknown indication
     Dosage: 100 MILLIGRAM, QD (INCREASED TO 100 MG DAILY)
     Route: 048
     Dates: start: 2015, end: 201507
  7. TRAZODONE HYDROCHLORIDE [Suspect]
     Active Substance: TRAZODONE HYDROCHLORIDE
     Dosage: 50 MILLIGRAM (50MG INITAILLY INCREASED TO 100MG DAILY)
     Route: 048
     Dates: start: 2015, end: 201507
  8. ESCITALOPRAM [Suspect]
     Active Substance: ESCITALOPRAM OXALATE
     Indication: Antidepressant therapy
     Dosage: UNK
     Dates: start: 201507, end: 201509
  9. ESCITALOPRAM [Suspect]
     Active Substance: ESCITALOPRAM OXALATE
     Dosage: 10 MILLIGRAM, DAILY 10MG DAILY
     Route: 048
     Dates: start: 201507, end: 201509
  10. ESCITALOPRAM [Suspect]
     Active Substance: ESCITALOPRAM OXALATE
     Dosage: 10 MILLIGRAM
     Route: 065
     Dates: end: 201509
  11. ESCITALOPRAM [Suspect]
     Active Substance: ESCITALOPRAM OXALATE
     Dosage: 10 MILLIGRAM, QD
     Route: 065
     Dates: start: 201509, end: 201509
  12. TEMAZEPAM [Suspect]
     Active Substance: TEMAZEPAM
     Indication: Poor quality sleep
     Dosage: 10 MILLIGRAM, DAILY, 10 MG DAILY
     Route: 048
  13. TEMAZEPAM [Suspect]
     Active Substance: TEMAZEPAM
     Indication: Headache
     Dosage: 10 MILLIGRAM, QD (ORAL SOLUTION)
     Route: 048
  14. TEMAZEPAM [Suspect]
     Active Substance: TEMAZEPAM
     Dosage: 10 MILLIGRAM, QD (ORAL SOLUTION)
     Route: 048
  15. RISPERIDONE [Suspect]
     Active Substance: RISPERIDONE
     Indication: Ill-defined disorder
     Dosage: UNKNOWN
     Route: 048
  16. RISPERIDONE [Suspect]
     Active Substance: RISPERIDONE
     Indication: Physical disability
     Dosage: UNK
     Route: 048
  17. RISPERIDONE [Suspect]
     Active Substance: RISPERIDONE
     Indication: Product used for unknown indication
     Dosage: UNK
     Route: 065
  18. CITALOPRAM [Suspect]
     Active Substance: CITALOPRAM HYDROBROMIDE
     Indication: Ill-defined disorder
     Dosage: 10 MILLIGRAM, UNK, 10 MG INITIALLY
     Route: 048
     Dates: start: 20150715, end: 201509
  19. CITALOPRAM [Suspect]
     Active Substance: CITALOPRAM HYDROBROMIDE
     Indication: Headache
     Dosage: 10 MILLIGRAM INITIALLY, ORAL SOLUTION
     Route: 048
     Dates: start: 201507, end: 201509
  20. CITALOPRAM [Suspect]
     Active Substance: CITALOPRAM HYDROBROMIDE
     Indication: Product used for unknown indication
     Dosage: 10 MILLIGRAM, UNK, 10 MG INITIALLY
     Route: 048
     Dates: start: 201507
  21. CITALOPRAM [Suspect]
     Active Substance: CITALOPRAM HYDROBROMIDE
     Dosage: 10 MG (UNIT DOSE)
     Route: 048
  22. CITALOPRAM [Suspect]
     Active Substance: CITALOPRAM HYDROBROMIDE
     Dosage: 10 MG (UNKNOWN)
     Route: 048
  23. CIPRALEX [Suspect]
     Active Substance: ESCITALOPRAM OXALATE
     Indication: Antidepressant therapy
     Dosage: 10 MILLIGRAM, DAILY 10MG DAILY
     Route: 048
     Dates: start: 201507, end: 201509
  24. CIPRALEX [Suspect]
     Active Substance: ESCITALOPRAM OXALATE
     Dosage: 10 MILLIGRAM, QD
     Route: 048
     Dates: start: 201509, end: 201509
  25. CIPRALEX [Suspect]
     Active Substance: ESCITALOPRAM OXALATE
     Dosage: UNK
     Route: 065
     Dates: start: 201507, end: 201509
  26. CIPRALEX [Suspect]
     Active Substance: ESCITALOPRAM OXALATE
     Dosage: 10 MILLIGRAM, QD
     Route: 048
     Dates: end: 201509
  27. CIPRALEX [Suspect]
     Active Substance: ESCITALOPRAM OXALATE
     Dosage: 10 MILLIGRAM, QD
     Route: 048
     Dates: start: 201507, end: 201509
  28. SERTRALINE [Suspect]
     Active Substance: SERTRALINE HYDROCHLORIDE
     Indication: Antidepressant therapy
     Dosage: 100 MILLIGRAM
     Route: 048
     Dates: start: 20140615
  29. SERTRALINE [Suspect]
     Active Substance: SERTRALINE HYDROCHLORIDE
     Indication: Homicidal ideation
  30. TRAZODONE [Suspect]
     Active Substance: TRAZODONE HYDROCHLORIDE
     Indication: Antidepressant therapy
     Dosage: 50MG INITAILLY INCREASED TO 100MG DAILY THEN REDUCED TO 50MG BEFORE STOPPING
     Route: 048
     Dates: start: 2015, end: 201507
  31. TRAZODONE [Suspect]
     Active Substance: TRAZODONE HYDROCHLORIDE
     Indication: Poor quality sleep
     Dosage: 100 MILLIGRAM
     Route: 048
  32. TRAZODONE [Suspect]
     Active Substance: TRAZODONE HYDROCHLORIDE
     Indication: Poor quality sleep
     Dosage: 100 MG, QD (INCREASED TO 100MG DAILY)
     Route: 048
     Dates: start: 2015, end: 201507
  33. TRAZODONE [Suspect]
     Active Substance: TRAZODONE HYDROCHLORIDE
     Dosage: 50 MG (50MG INITAILLY)
     Route: 048
     Dates: start: 2015, end: 201507
  34. TRAZODONE [Suspect]
     Active Substance: TRAZODONE HYDROCHLORIDE
     Dosage: 50 MILLIGRAM, UNK, 50MG INITIALLY INCREASED TO 100MG DAILY THEN REDUCED TO 50MG BEFORE STOPPING
     Route: 048
     Dates: start: 2015, end: 201507
  35. TRAZODONE [Suspect]
     Active Substance: TRAZODONE HYDROCHLORIDE
     Dosage: 50 MILLIGRAM, QD
     Route: 048
     Dates: start: 2015, end: 201507
  36. TRAZODONE [Suspect]
     Active Substance: TRAZODONE HYDROCHLORIDE
     Dosage: 50 MILLIGRAM
     Route: 048
     Dates: start: 2015, end: 201507
  37. TRAZODONE [Suspect]
     Active Substance: TRAZODONE HYDROCHLORIDE
     Dosage: 100 MILLIGRAM, QD
     Route: 048
     Dates: start: 2015, end: 201507
  38. TRAZODONE [Suspect]
     Active Substance: TRAZODONE HYDROCHLORIDE
     Dosage: 50 MG, QD
     Route: 048
  39. SERTRALINE [Suspect]
     Active Substance: SERTRALINE HYDROCHLORIDE
     Indication: Product used for unknown indication
     Dosage: 50 MILLIGRAM
     Route: 048
     Dates: start: 20140615
  40. SERTRALINE [Suspect]
     Active Substance: SERTRALINE HYDROCHLORIDE
     Indication: Antidepressant therapy
     Dosage: 50 MILLIGRAM, UNK, 50 MG INITIALLY THEN 100 MG
     Route: 048
     Dates: start: 20140615
  41. SERTRALINE [Suspect]
     Active Substance: SERTRALINE HYDROCHLORIDE
     Indication: Antidepressant therapy
     Dosage: 100 MILLIGRAM, UNK
     Route: 048
     Dates: start: 2014
  42. SERTRALINE [Suspect]
     Active Substance: SERTRALINE HYDROCHLORIDE
     Indication: Homicidal ideation
     Dosage: 50 MILLIGRAM INITALLY THEN 100MG
     Route: 048
     Dates: start: 2014
  43. SERTRALINE [Suspect]
     Active Substance: SERTRALINE HYDROCHLORIDE
     Dosage: UNK
     Route: 065
  44. SERTRALINE [Concomitant]
     Active Substance: SERTRALINE HYDROCHLORIDE
     Indication: Antidepressant therapy
     Dosage: 50 MILLIGRAM, INITIALLLY
     Route: 048
     Dates: start: 2014

REACTIONS (26)
  - Agitation [Unknown]
  - Mood swings [Unknown]
  - Irritability [Unknown]
  - Suicidal ideation [Unknown]
  - Suicide attempt [Unknown]
  - Paranoia [Unknown]
  - Intrusive thoughts [Unknown]
  - Homicidal ideation [Unknown]
  - Anger [Unknown]
  - Loss of libido [Unknown]
  - Hallucination, visual [Unknown]
  - Somnolence [Unknown]
  - Insomnia [Unknown]
  - Hallucination, auditory [Unknown]
  - Psychotic disorder [Unknown]
  - Nausea [Unknown]
  - Headache [Unknown]
  - Confusional state [Unknown]
  - Amnesia [Unknown]
  - Sedation [Unknown]
  - Tachyphrenia [Unknown]
  - Feeling abnormal [Unknown]
  - Product use in unapproved indication [Unknown]
  - Off label use [Unknown]
  - Aggression [Unknown]
  - Withdrawal syndrome [Unknown]
